FAERS Safety Report 24752044 (Version 1)
Quarter: 2024Q4

REPORT INFORMATION
  Report Type: Spontaneous
  Country: ES (occurrence: ES)
  Receive Date: 20241219
  Receipt Date: 20241219
  Transmission Date: 20250115
  Serious: Yes (Death, Life-Threatening, Hospitalization)
  Sender: RANBAXY
  Company Number: ES-EMA-DD-20241112-7483181-103755

PATIENT
  Age: 7 Year
  Sex: Female

DRUGS (4)
  1. CYCLOSPORINE [Suspect]
     Active Substance: CYCLOSPORINE
     Indication: Organ transplant
     Dosage: UNK
     Route: 065
     Dates: start: 2004
  2. METHOTREXATE SODIUM [Concomitant]
     Active Substance: METHOTREXATE SODIUM
     Indication: Organ transplant
     Dosage: UNK
     Route: 065
     Dates: start: 2004
  3. CYCLOPHOSPHAMIDE [Concomitant]
     Active Substance: CYCLOPHOSPHAMIDE
     Indication: Organ transplant
     Dosage: UNK
     Route: 065
     Dates: start: 2004
  4. MYCOPHENOLATE MOFETIL [Concomitant]
     Active Substance: MYCOPHENOLATE MOFETIL
     Indication: Organ transplant
     Dosage: UNK
     Route: 065
     Dates: start: 2004

REACTIONS (10)
  - Graft versus host disease [Fatal]
  - Encephalopathy [Recovered/Resolved]
  - Electroencephalogram abnormal [Recovering/Resolving]
  - Partial seizures [Recovered/Resolved]
  - Eye movement disorder [Recovered/Resolved]
  - Nystagmus [Recovered/Resolved]
  - Hypertension [Recovered/Resolved]
  - Status epilepticus [Recovered/Resolved]
  - Computerised tomogram abnormal [Recovered/Resolved]
  - Petit mal epilepsy [Recovered/Resolved]

NARRATIVE: CASE EVENT DATE: 20040101
